FAERS Safety Report 16198061 (Version 1)
Quarter: 2019Q2

REPORT INFORMATION
  Report Type: Spontaneous
  Country: FI (occurrence: FI)
  Receive Date: 20190415
  Receipt Date: 20190415
  Transmission Date: 20190711
  Serious: Yes (Other)
  Sender: FDA-Public Use
  Company Number: IND-FI-009507513-1902FIN002106

PATIENT
  Age: 67 Year
  Sex: Male

DRUGS (6)
  1. LERCANIDIPINE HYDROCHLORIDE [Concomitant]
     Active Substance: LERCANIDIPINE HYDROCHLORIDE
     Indication: HYPERTENSION
     Route: 048
  2. ASPIRIN CARDIO [Concomitant]
     Active Substance: ASPIRIN
     Dosage: 100 MILLIGRAM, DAILY
     Route: 048
  3. ARCOXIA [Suspect]
     Active Substance: ETORICOXIB
     Indication: MENISCUS INJURY
     Dosage: 90 MILLIGRAM, DAILY
     Route: 048
     Dates: start: 20120419, end: 2012
  4. SIMVASTATIN ACTAVIS [Concomitant]
     Active Substance: SIMVASTATIN
     Indication: BLOOD CHOLESTEROL
     Dosage: 20 MILLIGRAM, DAILY
     Route: 048
  5. APURIN [Concomitant]
     Active Substance: ALLOPURINOL
     Indication: GOUT
     Dosage: 100 MILLIGRAM, QD
     Route: 048
  6. ATACAND [Concomitant]
     Active Substance: CANDESARTAN CILEXETIL
     Indication: HYPERTENSION
     Dosage: 16 MILLIGRAM, DAILY
     Route: 048

REACTIONS (5)
  - Weight increased [Recovered/Resolved]
  - Cardiac failure [Recovered/Resolved]
  - Product use in unapproved indication [Recovered/Resolved]
  - Dyspnoea [Recovered/Resolved]
  - Dizziness [Recovered/Resolved]

NARRATIVE: CASE EVENT DATE: 201204
